FAERS Safety Report 5716117-5 (Version None)
Quarter: 2008Q2

REPORT INFORMATION
  Report Type: 
  Country: None (occurrence: None)
  Receive Date: 20080423
  Receipt Date: 20080423
  Transmission Date: 20081010
  Serious: Yes (Hospitalization)
  Sender: FDA-Public Use
  Company Number: None

PATIENT
  Age: 38 Year
  Sex: Female
  Weight: 53.978 kg

DRUGS (3)
  1. ZOMETA [Suspect]
     Indication: BONE NEOPLASM
     Dosage: 1 X EACH MONTH  IV DRIP
     Route: 041
     Dates: start: 20071130
  2. ZOMETA [Suspect]
     Indication: BREAST CANCER
     Dosage: 1 X EACH MONTH  IV DRIP
     Route: 041
     Dates: start: 20071130
  3. ZOMETA [Suspect]
     Indication: METASTASES TO BONE
     Dosage: 1 X EACH MONTH  IV DRIP
     Route: 041
     Dates: start: 20071130

REACTIONS (8)
  - BLOOD COUNT ABNORMAL [None]
  - BONE PAIN [None]
  - CHEST PAIN [None]
  - HAEMATOCRIT DECREASED [None]
  - MIDDLE INSOMNIA [None]
  - PAIN [None]
  - PYREXIA [None]
  - VOMITING [None]
